FAERS Safety Report 4280173-4 (Version None)
Quarter: 2004Q1

REPORT INFORMATION
  Report Type: 
  Country: None (occurrence: None)
  Receive Date: 20040126
  Receipt Date: 20040114
  Transmission Date: 20041129
  Serious: Yes (Other)
  Sender: FDA-Public Use
  Company Number: 2004002723

PATIENT
  Sex: Male
  Weight: 72.5755 kg

DRUGS (5)
  1. DILANTIN [Suspect]
     Indication: CONVULSION
     Dosage: 200 MG (DAILY), ORAL
     Route: 048
  2. FINASTERIDE [Concomitant]
  3. TAMSULOSIN HYDROCHLORIDE (TAMSULOSIN HYDROCHLORIDE) [Concomitant]
  4. PRAVASTATIN SODIUM [Concomitant]
  5. ENALAPRIL MAELATE (ENALAPRIL MALEATE) [Concomitant]

REACTIONS (1)
  - PLATELET COUNT INCREASED [None]
